FAERS Safety Report 4568486-X (Version None)
Quarter: 2005Q1

REPORT INFORMATION
  Report Type: 
  Country: None (occurrence: None)
  Receive Date: 20050202
  Receipt Date: 20050121
  Transmission Date: 20050727
  Serious: Yes (Hospitalization)
  Sender: FDA-Public Use
  Company Number: ESWYE365824JAN05

PATIENT

DRUGS (1)
  1. ENBREL [Suspect]
     Indication: DRUG USE FOR UNKNOWN INDICATION
     Route: 058

REACTIONS (5)
  - DIZZINESS [None]
  - ERYTHEMA [None]
  - HYPERSENSITIVITY [None]
  - PRURITUS GENERALISED [None]
  - VISUAL DISTURBANCE [None]
